FAERS Safety Report 22163951 (Version 1)
Quarter: 2023Q2

REPORT INFORMATION
  Report Type: Spontaneous
  Country: US (occurrence: US)
  Receive Date: 20230402
  Receipt Date: 20230402
  Transmission Date: 20230722
  Serious: No
  Sender: FDA-Public Use
  Company Number: US-drreddys-SPO/USA/23/0161300

PATIENT
  Age: 75 Year
  Sex: Female

DRUGS (1)
  1. FONDAPARINUX SODIUM [Suspect]
     Active Substance: FONDAPARINUX SODIUM
     Indication: Product used for unknown indication
     Route: 058

REACTIONS (2)
  - Skin lesion [Unknown]
  - Skin hyperpigmentation [Unknown]
